FAERS Safety Report 19208279 (Version 3)
Quarter: 2021Q2

REPORT INFORMATION
  Report Type: Spontaneous
  Country: US (occurrence: US)
  Receive Date: 20210503
  Receipt Date: 20210512
  Transmission Date: 20210717
  Serious: No
  Sender: FDA-Public Use
  Company Number: US-JNJFOC-20210500381

PATIENT
  Age: 89 Year
  Sex: Female

DRUGS (2)
  1. DURAGESIC [Suspect]
     Active Substance: FENTANYL
     Indication: PRODUCT USED FOR UNKNOWN INDICATION
     Dosage: STRENGTH: 100.00 MCG/HR
     Route: 062
  2. DURAGESIC [Suspect]
     Active Substance: FENTANYL

REACTIONS (2)
  - Underdose [Unknown]
  - Product adhesion issue [Unknown]
